FAERS Safety Report 10672198 (Version 1)
Quarter: 2014Q4

REPORT INFORMATION
  Report Type: Spontaneous
  Country: US (occurrence: None)
  Receive Date: 20141222
  Receipt Date: 20141222
  Transmission Date: 20150529
  Serious: Yes (Other)
  Sender: FDA-Public Use
  Company Number: None

PATIENT
  Age: 55 Year
  Sex: Female
  Weight: 51.26 kg

DRUGS (1)
  1. LEVAQUIN [Suspect]
     Active Substance: LEVOFLOXACIN
     Indication: BRONCHITIS
     Dosage: 1 PILL
     Route: 048
     Dates: start: 20141211, end: 20141216

REACTIONS (6)
  - Hypomania [None]
  - Movement disorder [None]
  - Peripheral coldness [None]
  - Muscular weakness [None]
  - Elevated mood [None]
  - Musculoskeletal pain [None]

NARRATIVE: CASE EVENT DATE: 20141211
